FAERS Safety Report 8834009 (Version 1)
Quarter: 2012Q4

REPORT INFORMATION
  Report Type: 
  Country: DK (occurrence: DK)
  Receive Date: 20121010
  Receipt Date: 20121010
  Transmission Date: 20130627
  Serious: Yes (Other)
  Sender: FDA-Public Use
  Company Number: DK-009507513-1209DNK008462

PATIENT
  Age: 65 Year
  Sex: Female

DRUGS (1)
  1. FOSAMAX [Suspect]
     Indication: OSTEOPOROSIS
     Route: 048
     Dates: start: 2006, end: 20110124

REACTIONS (2)
  - Osteonecrosis of jaw [Recovering/Resolving]
  - Jaw fracture [Recovering/Resolving]
